FAERS Safety Report 8947442 (Version 2)
Quarter: 2012Q4

REPORT INFORMATION
  Report Type: 
  Country: US (occurrence: US)
  Receive Date: 20121204
  Receipt Date: 20121210
  Transmission Date: 20130627
  Serious: Yes (Life-Threatening)
  Sender: FDA-Public Use
  Company Number: US-ROCHE-1161984

PATIENT
  Age: 40 Year
  Sex: Female
  Weight: 86 kg

DRUGS (17)
  1. ALTEPLASE [Suspect]
     Indication: PULMONARY EMBOLISM
     Dosage: 20 mg, 1 in 1 Once
     Route: 013
  2. HEPARIN [Suspect]
     Indication: PRODUCT USED FOR UNKNOWN INDICATION
     Dosage: 1000 U/hr infusion
     Route: 065
  3. HEPARIN [Suspect]
     Route: 058
  4. HEPARIN [Suspect]
     Dosage: every 8 hrs
     Route: 058
  5. SCOPOLAMINE [Concomitant]
     Dosage: 0,4 mg (0,4 mg,1 in 1 Once)
     Route: 042
  6. EPINEPHRINE [Concomitant]
     Indication: BRADYCARDIA
     Dosage: maintenance of 32 mcg/min infusion
     Route: 042
  7. EPINEPHRINE [Concomitant]
     Route: 065
  8. EPINEPHRINE [Concomitant]
     Route: 042
  9. EPINEPHRINE [Concomitant]
     Dosage: 4ug/min
     Route: 042
  10. EPINEPHRINE [Concomitant]
     Dosage: 8ug/min
     Route: 042
  11. EPINEPHRINE [Concomitant]
     Dosage: 16ug/min
     Route: 042
  12. EPINEPHRINE [Concomitant]
     Dosage: 32ug/min
     Route: 042
  13. EPINEPHRINE [Concomitant]
     Route: 042
  14. VASOPRESSIN [Concomitant]
     Dosage: maintenance of 0.04 U/hr infusion
     Route: 065
  15. PITOCIN [Concomitant]
     Dosage: maintenance of 10 U/hr infusion
     Route: 065
  16. ATROPINE [Concomitant]
     Route: 065
  17. ATROPINE [Concomitant]
     Route: 042

REACTIONS (3)
  - Incision site haemorrhage [Recovered/Resolved]
  - Vaginal haemorrhage [Recovered/Resolved]
  - Uterine haemorrhage [Recovered/Resolved]
